FAERS Safety Report 6112857-7 (Version None)
Quarter: 2009Q1

REPORT INFORMATION
  Report Type: 
  Country: None (occurrence: None)
  Receive Date: 20090310
  Receipt Date: 20090225
  Transmission Date: 20090719
  Serious: Yes (Other)
  Sender: FDA-Public Use
  Company Number: B0563166A

PATIENT
  Sex: Male

DRUGS (6)
  1. TOPOTECAN HYDROCHLORIDE  (FORMULATION UNKNOWN) (GENERIC) (TOPOTECAN) [Suspect]
     Indication: ADENOMA BENIGN
  2. CISPLATIN [Suspect]
     Indication: ADENOMA BENIGN
  3. DOCETAXEL (FORMULATION UNKNOWN) (DOCETAXEL) [Suspect]
     Indication: ADENOMA BENIGN
  4. VINORELBINE TARTRATE [Suspect]
     Indication: ADENOMA BENIGN
  5. GRANULOCYTE COL.STIM.FACT (FORMULATION UNKNOWN) (GRANULOCYTE COL.STIM. [Suspect]
     Indication: ADENOMA BENIGN
  6. RADIOTHERAPY (FORMULATION UNKNOWN0 (RADIOTHERAPY) [Suspect]
     Indication: ADENOMA BENIGN

REACTIONS (4)
  - ADENOCARCINOMA [None]
  - METASTASIS [None]
  - MUSCULOSKELETAL DISCOMFORT [None]
  - PARAPROTEINAEMIA [None]
